FAERS Safety Report 4385233-5 (Version None)
Quarter: 2004Q2

REPORT INFORMATION
  Report Type: 
  Country: None (occurrence: None)
  Receive Date: 20040625
  Receipt Date: 20030929
  Transmission Date: 20050107
  Serious: Yes (Hospitalization)
  Sender: FDA-Public Use
  Company Number: US-MERCK-0310USA00235

PATIENT
  Age: 42 Year
  Sex: Female

DRUGS (15)
  1. [THERAPY UNSPECIFIED] [Concomitant]
     Route: 065
     Dates: start: 20010901, end: 20040518
  2. TYLENOL [Concomitant]
     Indication: PAIN
     Route: 065
  3. DARVOCET-N 100 [Concomitant]
     Indication: PAIN
     Route: 065
  4. EMERGEN C [Concomitant]
     Indication: HEADACHE
     Route: 065
  5. ASTELIN [Concomitant]
     Indication: HYPERSENSITIVITY
     Route: 065
  6. STADOL [Concomitant]
     Indication: HEADACHE
     Route: 065
  7. ZYRTEC [Concomitant]
     Indication: HYPERSENSITIVITY
     Route: 065
  8. ALLEGRA [Concomitant]
     Indication: HYPERSENSITIVITY
     Route: 065
  9. CLARITIN [Concomitant]
     Indication: HYPERSENSITIVITY
     Route: 065
  10. ANAPROX [Concomitant]
     Indication: PAIN
     Route: 065
  11. VIOXX [Suspect]
     Indication: PAIN
     Route: 048
     Dates: start: 20020101, end: 20020101
  12. MERIDIA [Concomitant]
     Indication: WEIGHT DECREASED
     Route: 065
  13. IMITREX [Concomitant]
     Indication: HEADACHE
     Route: 065
  14. VALTREX [Concomitant]
     Indication: HERPES ZOSTER
     Route: 065
  15. ZOMIG [Concomitant]
     Indication: IRRITABLE BOWEL SYNDROME
     Route: 065

REACTIONS (3)
  - ABDOMINAL PAIN [None]
  - EMOTIONAL DISTRESS [None]
  - IRRITABLE BOWEL SYNDROME [None]
